FAERS Safety Report 16711015 (Version 1)
Quarter: 2019Q3

REPORT INFORMATION
  Report Type: Spontaneous
  Country: DE (occurrence: DE)
  Receive Date: 20190816
  Receipt Date: 20190816
  Transmission Date: 20191004
  Serious: Yes (Hospitalization, Other)
  Sender: FDA-Public Use
  Company Number: DE-PFIZER INC-2019346913

PATIENT
  Age: 73 Year
  Sex: Female

DRUGS (27)
  1. ITERIUM [Suspect]
     Active Substance: RILMENIDINE
     Dosage: UNK
     Route: 065
  2. NOMEXOR [Suspect]
     Active Substance: NEBIVOLOL HYDROCHLORIDE
     Dosage: UNK
     Route: 065
  3. ALDOMETIL [Suspect]
     Active Substance: METHYLDOPA
     Dosage: UNK
     Route: 065
  4. AMLODILAN [Suspect]
     Active Substance: AMLODIPINE BESYLATE
     Dosage: UNK
     Route: 065
  5. ZANIPRIL [Suspect]
     Active Substance: ENALAPRIL MALEATE\LERCANIDIPINE HYDROCHLORIDE
     Dosage: UNK
     Route: 065
  6. AMLODIPINE BESILATE [Suspect]
     Active Substance: AMLODIPINE BESYLATE
     Dosage: UNK
     Route: 065
  7. MICARDIS [Suspect]
     Active Substance: TELMISARTAN
     Dosage: UNK
     Route: 065
  8. MICARDIS [Suspect]
     Active Substance: TELMISARTAN
     Dosage: UNK
     Route: 065
  9. ZANIPRIL [Suspect]
     Active Substance: ENALAPRIL MALEATE\LERCANIDIPINE HYDROCHLORIDE
     Dosage: UNK
     Route: 065
  10. INTERAL [Suspect]
     Active Substance: INTERFERON ALFA-2A
     Dosage: UNK
     Route: 065
  11. SPIROBENE [Suspect]
     Active Substance: SPIRONOLACTONE
     Dosage: UNK
     Route: 065
  12. VICARD [TERAZOSIN HYDROCHLORIDE] [Suspect]
     Active Substance: TERAZOSIN HYDROCHLORIDE
     Dosage: UNK
     Route: 065
  13. ADALAT [Suspect]
     Active Substance: NIFEDIPINE
     Dosage: UNK
     Route: 065
  14. ZANIDIP [Suspect]
     Active Substance: LERCANIDIPINE HYDROCHLORIDE
     Dosage: UNK
     Route: 065
  15. RASILEZ [Suspect]
     Active Substance: ALISKIREN
     Dosage: 150 MG, UNK
     Route: 065
  16. MOXONIDINE [Suspect]
     Active Substance: MOXONIDINE
     Dosage: UNK
     Route: 065
  17. ITERIUM [Suspect]
     Active Substance: RILMENIDINE
     Dosage: UNK
     Route: 065
  18. INTERAL [Suspect]
     Active Substance: INTERFERON ALFA-2A
     Dosage: UNK
     Route: 065
  19. SPIROBENE [Suspect]
     Active Substance: SPIRONOLACTONE
     Dosage: UNK
     Route: 065
  20. ZANIDIP [Suspect]
     Active Substance: LERCANIDIPINE HYDROCHLORIDE
     Dosage: UNK
     Route: 065
  21. AMLODILAN [Suspect]
     Active Substance: AMLODIPINE BESYLATE
     Dosage: UNK
     Route: 065
  22. AMLODIPINE BESILATE [Suspect]
     Active Substance: AMLODIPINE BESYLATE
     Dosage: UNK
     Route: 065
  23. NOMEXOR [Suspect]
     Active Substance: NEBIVOLOL HYDROCHLORIDE
     Dosage: UNK
     Route: 065
  24. ALDOMETIL [Suspect]
     Active Substance: METHYLDOPA
     Dosage: UNK
     Route: 065
  25. VICARD [TERAZOSIN HYDROCHLORIDE] [Suspect]
     Active Substance: TERAZOSIN HYDROCHLORIDE
     Dosage: UNK
     Route: 065
  26. RASILEZ [Suspect]
     Active Substance: ALISKIREN
     Indication: HYPERTENSION
     Dosage: 300 MG, UNK
     Route: 065
     Dates: start: 2009
  27. ADALAT [Suspect]
     Active Substance: NIFEDIPINE
     Dosage: UNK
     Route: 065

REACTIONS (4)
  - Drug intolerance [Unknown]
  - Blood pressure increased [Recovered/Resolved]
  - Cerebrovascular accident [Unknown]
  - Drug ineffective [Unknown]

NARRATIVE: CASE EVENT DATE: 2015
